FAERS Safety Report 7877670-9 (Version None)
Quarter: 2011Q4

REPORT INFORMATION
  Report Type: 
  Country: None (occurrence: None)
  Receive Date: 20111031
  Receipt Date: 20111031
  Transmission Date: 20120403
  Serious: Yes (Life-Threatening, Disabling, Other)
  Sender: FDA-Public Use
  Company Number: None

PATIENT
  Age: 35 Year
  Sex: Female
  Weight: 91.172 kg

DRUGS (2)
  1. MIRENA [Suspect]
     Indication: CONTRACEPTION
     Dates: start: 20110901, end: 20111024
  2. MIRENA [Suspect]
     Indication: HAEMORRHAGE
     Dates: start: 20110901, end: 20111024

REACTIONS (7)
  - MUSCLE SPASMS [None]
  - PANIC ATTACK [None]
  - BACK PAIN [None]
  - DEPRESSION [None]
  - ANXIETY [None]
  - APATHY [None]
  - WEIGHT DECREASED [None]
